FAERS Safety Report 6107243-X (Version None)
Quarter: 2009Q1

REPORT INFORMATION
  Report Type: 
  Country: None (occurrence: None)
  Receive Date: 20090305
  Receipt Date: 20090225
  Transmission Date: 20090719
  Serious: Yes (Disabling)
  Sender: FDA-Public Use
  Company Number: APP200900103

PATIENT
  Sex: Female

DRUGS (4)
  1. BUPIVACAINE [Suspect]
     Indication: ARTHRALGIA
     Dosage: CONTINUOUS VIA PAIN PUMP
     Dates: start: 20070322
  2. BUPIVACAINE [Suspect]
     Indication: PROCEDURAL PAIN
     Dosage: CONTINUOUS VIA PAIN PUMP
     Dates: start: 20070322
  3. I-FLOW PAIN PUMP [Suspect]
     Indication: ARTHRALGIA
     Dates: start: 20070327
  4. I-FLOW PAIN PUMP [Suspect]
     Indication: PROCEDURAL PAIN
     Dates: start: 20070327

REACTIONS (4)
  - ABSCESS LIMB [None]
  - GANGRENE [None]
  - INCISION SITE BLISTER [None]
  - PAIN IN EXTREMITY [None]
